FAERS Safety Report 6616444-3 (Version None)
Quarter: 2010Q1

REPORT INFORMATION
  Report Type: 
  Country: None (occurrence: None)
  Receive Date: 20100305
  Receipt Date: 20100302
  Transmission Date: 20100710
  Serious: Yes (Death)
  Sender: FDA-Public Use
  Company Number: PHHY2009BE46629

PATIENT
  Sex: Female

DRUGS (7)
  1. GLEEVEC [Suspect]
     Indication: GRAFT VERSUS HOST DISEASE
     Dosage: 400 MG DAILY
     Route: 048
     Dates: start: 20090810, end: 20090827
  2. CORDARONE [Concomitant]
     Dosage: 200 MG, UNK
     Dates: start: 20090201
  3. MEDROL [Concomitant]
     Dosage: 8 MG, UNK
     Dates: start: 20090201
  4. METFORMAX [Concomitant]
     Dosage: UNK
     Dates: start: 20090201
  5. ACYCLOVIR [Concomitant]
     Dosage: 400 MG, UNK
     Dates: start: 20090201
  6. ZOCOR [Concomitant]
     Dosage: 20 MG, UNK
     Dates: start: 20090201
  7. LYRICA [Concomitant]
     Dosage: UNK
     Dates: start: 20090201

REACTIONS (2)
  - RESPIRATORY TRACT INFECTION [None]
  - STAPHYLOCOCCAL SEPSIS [None]
